FAERS Safety Report 21274766 (Version 1)
Quarter: 2022Q3

REPORT INFORMATION
  Report Type: Report from Study
  Country: FR (occurrence: FR)
  Receive Date: 20220831
  Receipt Date: 20220831
  Transmission Date: 20221027
  Serious: Yes (Life-Threatening, Other)
  Sender: FDA-Public Use
  Company Number: FR-TAKEDA-2022TUS060187

PATIENT
  Sex: Female

DRUGS (5)
  1. ICATIBANT [Suspect]
     Active Substance: ICATIBANT ACETATE
     Indication: Hereditary angioedema
     Dosage: UNK
     Route: 065
  2. ICATIBANT [Suspect]
     Active Substance: ICATIBANT ACETATE
     Indication: Hereditary angioedema
     Dosage: UNK
     Route: 065
  3. WARFARIN [Concomitant]
     Active Substance: WARFARIN
     Indication: Cerebrovascular accident
     Dosage: UNK
     Route: 048
     Dates: start: 2014
  4. ROSUVASTATIN [Concomitant]
     Active Substance: ROSUVASTATIN
     Indication: Cerebrovascular accident
     Dosage: UNK
     Route: 048
     Dates: start: 201410
  5. LIORESAL [Concomitant]
     Active Substance: BACLOFEN
     Indication: Cerebrovascular accident
     Dosage: 100 MILLIGRAM, QD
     Route: 048
     Dates: start: 201410, end: 201410

REACTIONS (1)
  - Ischaemic stroke [Recovered/Resolved]

NARRATIVE: CASE EVENT DATE: 20141001
